FAERS Safety Report 18231113 (Version 1)
Quarter: 2020Q3

REPORT INFORMATION
  Report Type: Report from Study
  Country: None (occurrence: US)
  Receive Date: 20200904
  Receipt Date: 20200904
  Transmission Date: 20201103
  Serious: Yes (Hospitalization, Other)
  Sender: FDA-Public Use
  Company Number: US-ABBVIE-20K-163-3540294-00

PATIENT
  Age: 46 Year
  Sex: Female
  Weight: 86.71 kg

DRUGS (2)
  1. MERCAPTOPURINE. [Concomitant]
     Active Substance: MERCAPTOPURINE
     Indication: CROHN^S DISEASE
  2. HUMIRA [Suspect]
     Active Substance: ADALIMUMAB
     Indication: CROHN^S DISEASE
     Route: 058
     Dates: start: 2012

REACTIONS (3)
  - Crohn^s disease [Recovering/Resolving]
  - Surgery [Recovering/Resolving]
  - Suture related complication [Recovering/Resolving]

NARRATIVE: CASE EVENT DATE: 201906
